FAERS Safety Report 17655372 (Version 1)
Quarter: 2020Q2

REPORT INFORMATION
  Report Type: Spontaneous
  Country: CA (occurrence: CA)
  Receive Date: 20200410
  Receipt Date: 20200410
  Transmission Date: 20200713
  Serious: Yes (Other)
  Sender: FDA-Public Use
  Company Number: CA-TEVA-2020-CA-1220085

PATIENT
  Age: 61 Year
  Sex: Female
  Weight: 90 kg

DRUGS (12)
  1. ACETAMINOPHEN/CAFFEINE/CODEINE PHOSPHATE [Concomitant]
     Active Substance: ACETAMINOPHEN\CAFFEINE\CODEINE PHOSPHATE
  2. PHENYTOIN. [Concomitant]
     Active Substance: PHENYTOIN
  3. PREDNISONE. [Concomitant]
     Active Substance: PREDNISONE
  4. CLOBAZAM. [Concomitant]
     Active Substance: CLOBAZAM
  5. INHIBACE PLUS [Suspect]
     Active Substance: CILAZAPRIL ANHYDROUS\HYDROCHLOROTHIAZIDE
     Indication: HYPERTENSION
     Route: 048
  6. ELIQUIS [Concomitant]
     Active Substance: APIXABAN
  7. ATORVASTATIN CALCIUM. [Concomitant]
     Active Substance: ATORVASTATIN CALCIUM
  8. DILTIAZEM. [Concomitant]
     Active Substance: DILTIAZEM
  9. GABAPENTIN. [Suspect]
     Active Substance: GABAPENTIN
     Indication: NEUROPATHY PERIPHERAL
     Route: 065
  10. METFORMIN [Concomitant]
     Active Substance: METFORMIN HYDROCHLORIDE
  11. AMINOPHENAZONE/BELLADONNA/CAFFEINE/EPHEDRINE HYDROCHLORIDE/THEOPHYLLIN [Concomitant]
  12. VITAMIN D [COLECALCIFEROL] [Concomitant]
     Active Substance: CHOLECALCIFEROL

REACTIONS (7)
  - Diabetes mellitus inadequate control [Unknown]
  - Hyperglycaemia [Unknown]
  - Hypoaesthesia [Unknown]
  - Hyperuricaemia [Unknown]
  - Pain [Unknown]
  - Weight increased [Unknown]
  - Gout [Unknown]
